FAERS Safety Report 14370925 (Version 1)
Quarter: 2018Q1

REPORT INFORMATION
  Report Type: Spontaneous
  Country: TW (occurrence: TW)
  Receive Date: 20180110
  Receipt Date: 20180110
  Transmission Date: 20180509
  Serious: Yes (Life-Threatening, Other)
  Sender: FDA-Public Use
  Company Number: TW-SUN PHARMACEUTICAL INDUSTRIES LTD-2017R1-159104

PATIENT
  Age: 62 Year
  Sex: Female

DRUGS (1)
  1. METHOTREXATE. [Suspect]
     Active Substance: METHOTREXATE
     Indication: RHEUMATOID ARTHRITIS
     Dosage: 5 MG THREE TIMES A WEEK
     Route: 065

REACTIONS (3)
  - Organising pneumonia [Recovered/Resolved]
  - Pulmonary mass [Recovered/Resolved]
  - Lymphoproliferative disorder [Recovered/Resolved]
